FAERS Safety Report 5970903-5 (Version None)
Quarter: 2008Q4

REPORT INFORMATION
  Report Type: 
  Country: None (occurrence: None)
  Receive Date: 20081128
  Receipt Date: 20081118
  Transmission Date: 20090506
  Serious: Yes (Other)
  Sender: FDA-Public Use
  Company Number: PHHY2008GB29360

PATIENT
  Age: 64 Year
  Sex: Male

DRUGS (9)
  1. ALISKIREN [Suspect]
     Indication: HYPERTENSION
     Dosage: 300 MG, QD
     Route: 048
     Dates: start: 20080506
  2. AMLODIPINE [Concomitant]
  3. DICLOFENAC SODIUM [Concomitant]
     Dosage: 50 MG, UNK
     Route: 048
  4. GLUCOSAMINE [Concomitant]
     Dosage: 1500 MG, QD
     Route: 048
  5. HUMULIN [Concomitant]
     Route: 058
  6. IRBESARTAN [Concomitant]
     Dosage: 300 MG, QD
     Route: 048
  7. METFORMIN HCL [Concomitant]
     Dosage: 2 G, QD
     Route: 048
  8. ROSUVASTATIN [Concomitant]
     Dosage: 5 MG, UNK
     Route: 048
     Dates: start: 20080328
  9. TAMSULOSIN HCL [Concomitant]
     Dosage: 400 MG, UNK
     Route: 048

REACTIONS (2)
  - BLOOD GLUCOSE DECREASED [None]
  - HYPOGLYCAEMIA [None]
